FAERS Safety Report 20848774 (Version 1)
Quarter: 2022Q2

REPORT INFORMATION
  Report Type: Spontaneous
  Country: CN (occurrence: CN)
  Receive Date: 20220519
  Receipt Date: 20220519
  Transmission Date: 20220721
  Serious: Yes (Other)
  Sender: FDA-Public Use
  Company Number: CN-BAYER-2022A068298

PATIENT
  Age: 67 Year
  Sex: Male

DRUGS (6)
  1. NEXAVAR [Suspect]
     Active Substance: SORAFENIB
     Indication: Metastases to bone
     Dosage: 0.4 G, QD
     Route: 048
     Dates: start: 20200602, end: 20201111
  2. NEXAVAR [Suspect]
     Active Substance: SORAFENIB
     Indication: Hepatocellular carcinoma
  3. CAMRELIZUMAB [Suspect]
     Active Substance: CAMRELIZUMAB
     Indication: Metastases to bone
     Dosage: 200 MG, QD
     Route: 041
     Dates: start: 20200602, end: 20201111
  4. CAMRELIZUMAB [Suspect]
     Active Substance: CAMRELIZUMAB
     Indication: Hepatocellular carcinoma
  5. INCADRONATE DISODIUM [Concomitant]
     Active Substance: INCADRONATE DISODIUM
     Indication: Bone disorder
     Dosage: 5 MG, QD
     Route: 041
     Dates: start: 20201109
  6. PANTOPRAZOLE [Concomitant]
     Active Substance: PANTOPRAZOLE
     Indication: Antacid therapy
     Dosage: 80 MG, QD
     Route: 041
     Dates: start: 20201111

REACTIONS (2)
  - Autoimmune myocarditis [Recovering/Resolving]
  - Off label use [None]

NARRATIVE: CASE EVENT DATE: 20200602
